FAERS Safety Report 6298066-X (Version None)
Quarter: 2009Q3

REPORT INFORMATION
  Report Type: 
  Country: None (occurrence: None)
  Receive Date: 20090805
  Receipt Date: 20090727
  Transmission Date: 20100115
  Serious: Yes (Hospitalization, Other)
  Sender: FDA-Public Use
  Company Number: PRIUSA2000014002

PATIENT
  Sex: Female

DRUGS (5)
  1. REMICADE [Suspect]
     Route: 041
  2. REMICADE [Suspect]
     Indication: RHEUMATOID ARTHRITIS
     Route: 041
  3. METHOTREXATE [Concomitant]
     Indication: RHEUMATOID ARTHRITIS
  4. ACFOL [Concomitant]
  5. PARACETAMOL [Concomitant]

REACTIONS (1)
  - LYMPH NODE TUBERCULOSIS [None]
